FAERS Safety Report 19913059 (Version 3)
Quarter: 2021Q4

REPORT INFORMATION
  Report Type: Spontaneous
  Country: JP (occurrence: JP)
  Receive Date: 20211004
  Receipt Date: 20211126
  Transmission Date: 20220304
  Serious: Yes (Hospitalization, Other)
  Sender: FDA-Public Use
  Company Number: JP-TAKEDA-2021TJP093274

PATIENT
  Age: 73 Year
  Sex: Male
  Weight: 69 kg

DRUGS (5)
  1. CABOMETYX [Suspect]
     Active Substance: CABOZANTINIB S-MALATE
     Indication: Renal cell carcinoma
     Dosage: 60 MG, QD
     Route: 048
     Dates: start: 20210427, end: 20210705
  2. CABOMETYX [Suspect]
     Active Substance: CABOZANTINIB S-MALATE
     Dosage: 40 MG, QD
     Route: 048
     Dates: start: 20210820, end: 20210902
  3. OPDIVO [Suspect]
     Active Substance: NIVOLUMAB
     Indication: Renal cell carcinoma
     Dosage: 240 MILLIGRAM, Q3WEEKS
     Route: 041
     Dates: start: 20201117, end: 20210126
  4. OPDIVO [Suspect]
     Active Substance: NIVOLUMAB
     Dosage: 240 MILLIGRAM, Q2WEEKS
     Route: 041
     Dates: start: 20210216, end: 20210330
  5. YERVOY [Suspect]
     Active Substance: IPILIMUMAB
     Indication: Renal cell carcinoma
     Dosage: 67.6 MILLIGRAM, Q3WEEKS
     Route: 041
     Dates: start: 20201117, end: 20210126

REACTIONS (4)
  - Interstitial lung disease [Recovering/Resolving]
  - Renal impairment [Recovered/Resolved]
  - Liver function test abnormal [Recovered/Resolved]
  - Thyroid disorder [Recovering/Resolving]

NARRATIVE: CASE EVENT DATE: 20210511
